FAERS Safety Report 10548283 (Version 3)
Quarter: 2015Q1

REPORT INFORMATION
  Report Type: Spontaneous
  Country: US (occurrence: US)
  Receive Date: 20141028
  Receipt Date: 20150319
  Transmission Date: 20150720
  Serious: Yes (Hospitalization, Other)
  Sender: FDA-Public Use
  Company Number: US-GLAXOSMITHKLINE-US2014GSK013135

PATIENT
  Age: 88 Year
  Sex: Male

DRUGS (11)
  1. AMINOCAPROIC ACID. [Concomitant]
     Active Substance: AMINOCAPROIC ACID
  2. LASIX [Concomitant]
     Active Substance: FUROSEMIDE
  3. MEDROL [Concomitant]
     Active Substance: METHYLPREDNISOLONE
  4. PROMACTA [Suspect]
     Active Substance: ELTROMBOPAG OLAMINE
     Indication: PRODUCT USED FOR UNKNOWN INDICATION
     Dosage: 50 MG, QD
  5. CALCIUM AND VITAMIN D [Concomitant]
     Active Substance: CALCIUM\VITAMIN D
  6. ATIVAN [Concomitant]
     Active Substance: LORAZEPAM
  7. RANITIDINE [Concomitant]
     Active Substance: RANITIDINE\RANITIDINE HYDROCHLORIDE
  8. SIMVASTATIN. [Concomitant]
     Active Substance: SIMVASTATIN
  9. METHYLPREDNISOLONE. [Concomitant]
     Active Substance: METHYLPREDNISOLONE
  10. SPIRIVA [Concomitant]
     Active Substance: TIOTROPIUM BROMIDE MONOHYDRATE
  11. METOPROLOL [Concomitant]
     Active Substance: METOPROLOL

REACTIONS (8)
  - Thrombocytopenia [Unknown]
  - Decreased appetite [Unknown]
  - Device malfunction [Recovered/Resolved]
  - Hypoxia [Unknown]
  - Presyncope [Recovered/Resolved]
  - Bradycardia [Recovered/Resolved]
  - General physical health deterioration [Not Recovered/Not Resolved]
  - Palpitations [Recovered/Resolved]

NARRATIVE: CASE EVENT DATE: 201410
